FAERS Safety Report 6923013-4 (Version None)
Quarter: 2010Q3

REPORT INFORMATION
  Report Type: 
  Country: None (occurrence: None)
  Receive Date: 20100813
  Receipt Date: 20100805
  Transmission Date: 20110219
  Serious: Yes (Other)
  Sender: FDA-Public Use
  Company Number: GB-PFIZER INC-2010098505

PATIENT
  Age: 55 Year
  Sex: Female

DRUGS (14)
  1. PROVERA [Suspect]
     Dosage: 30 MG, UNK
  2. PROVERA [Suspect]
     Dosage: 200 MG, UNK
  3. BISOPROLOL [Concomitant]
     Dosage: 5 MG, UNK
  4. BISOPROLOL [Concomitant]
     Dosage: 10 MG, UNK
  5. GLUCOPHAGE [Concomitant]
     Dosage: 500 MG, 2X/DAY
  6. INSULIN GLULISINE [Concomitant]
     Dosage: UNK
  7. LANTUS [Concomitant]
     Dosage: UNK
  8. ROSUVASTATIN [Concomitant]
     Dosage: 10 MG, UNK
  9. LEVOCETIRIZINE [Concomitant]
     Dosage: UNK
  10. PANTOPRAZOLE [Concomitant]
     Dosage: UNK
  11. FUROSEMIDE [Concomitant]
     Dosage: 40 MG, UNK
  12. CLOPIDOGREL [Concomitant]
     Dosage: 75 MG, UNK
  13. SERETIDE [Concomitant]
     Dosage: 250 DF, UNK
  14. SALBUTAMOL [Concomitant]
     Dosage: UNK

REACTIONS (4)
  - BLOOD PRESSURE INCREASED [None]
  - DYSPNOEA [None]
  - HEADACHE [None]
  - RASH PRURITIC [None]
